FAERS Safety Report 4478140-0 (Version None)
Quarter: 2004Q4

REPORT INFORMATION
  Report Type: 
  Country: None (occurrence: None)
  Receive Date: 20041013
  Receipt Date: 20040929
  Transmission Date: 20050328
  Serious: Yes (Hospitalization, Other)
  Sender: FDA-Public Use
  Company Number: 2004073182

PATIENT
  Age: 57 Year
  Sex: Male

DRUGS (5)
  1. VFEND [Suspect]
     Indication: ASPERGILLOMA
     Dosage: 200 MG (1 D), ORAL
     Route: 048
     Dates: start: 20040415, end: 20040701
  2. FORMOTEROL FUMARATE (FORMOTEROL FUMARATE) [Concomitant]
  3. COMBIVENT [Concomitant]
  4. NAFTIDROFURYL OXALATE (NAFTIDROFURYL OXALATE) [Concomitant]
  5. PANCREATIN TRIPLE STRENGTH CAP [Concomitant]

REACTIONS (16)
  - ALANINE AMINOTRANSFERASE INCREASED [None]
  - ASPARTATE AMINOTRANSFERASE INCREASED [None]
  - ASPERGILLOSIS [None]
  - ASTHENIA [None]
  - BLOOD ALKALINE PHOSPHATASE INCREASED [None]
  - BLOOD BILIRUBIN INCREASED [None]
  - BLOOD LACTATE DEHYDROGENASE INCREASED [None]
  - CARDIO-RESPIRATORY DISTRESS [None]
  - CHOLESTASIS [None]
  - EJECTION FRACTION DECREASED [None]
  - GAMMA-GLUTAMYLTRANSFERASE INCREASED [None]
  - HAEMOGLOBIN DECREASED [None]
  - LEFT VENTRICULAR FAILURE [None]
  - LUNG DISORDER [None]
  - STAPHYLOCOCCAL INFECTION [None]
  - THROMBOCYTOPENIA [None]
